FAERS Safety Report 8459737-X (Version None)
Quarter: 2012Q2

REPORT INFORMATION
  Report Type: 
  Country: None (occurrence: None)
  Receive Date: 20120622
  Receipt Date: 20120618
  Transmission Date: 20120825
  Serious: Yes (Hospitalization)
  Sender: FDA-Public Use
  Company Number: CA-MERCK-1206USA02961

PATIENT
  Age: 38 Year
  Sex: Female

DRUGS (3)
  1. ZOLINZA [Suspect]
     Indication: ACUTE MYELOID LEUKAEMIA
     Dosage: TWO WEEKS ON TWO WEEKS OFF
     Route: 048
     Dates: start: 20120520
  2. ZOLINZA [Suspect]
     Dosage: TWO WEEKS ON TWO WEEKS OFF
     Route: 048
     Dates: start: 20120501
  3. ZOLINZA [Suspect]
     Dosage: TWO WEEKS ON TWO WEEKS OFF
     Route: 048
     Dates: start: 20120527

REACTIONS (3)
  - CELLULITIS [None]
  - IMMUNE SYSTEM DISORDER [None]
  - LACERATION [None]
